FAERS Safety Report 8367646-X (Version None)
Quarter: 2012Q2

REPORT INFORMATION
  Report Type: 
  Country: None (occurrence: None)
  Receive Date: 20120517
  Receipt Date: 20120514
  Transmission Date: 20120825
  Serious: Yes (Death)
  Sender: FDA-Public Use
  Company Number: US-ABBOTT-12P-163-0930096-00

PATIENT
  Sex: Male
  Weight: 62.652 kg

DRUGS (8)
  1. ADVAIR DISKUS 100/50 [Concomitant]
     Indication: CHRONIC OBSTRUCTIVE PULMONARY DISEASE
  2. HUMIRA [Suspect]
     Indication: PSORIATIC ARTHROPATHY
  3. ALBUTEROL [Concomitant]
     Indication: PRODUCT USED FOR UNKNOWN INDICATION
  4. ALBUTEROL [Concomitant]
     Indication: CHRONIC OBSTRUCTIVE PULMONARY DISEASE
  5. DIPHENHYDRAMINE HCL [Concomitant]
     Indication: PRURITUS
  6. HUMIRA [Suspect]
     Indication: PSORIASIS
     Dates: start: 20101208
  7. PROAIR HFA [Concomitant]
     Indication: CHRONIC OBSTRUCTIVE PULMONARY DISEASE
  8. HYDROXYZINE [Concomitant]
     Indication: PRURITUS

REACTIONS (1)
  - DEATH [None]
